FAERS Safety Report 26202724 (Version 1)
Quarter: 2025Q4

REPORT INFORMATION
  Report Type: Spontaneous
  Country: US (occurrence: US)
  Receive Date: 20251226
  Receipt Date: 20251226
  Transmission Date: 20260119
  Serious: No
  Sender: CIPLA
  Company Number: US-CIPLA LTD.-2025US16112

PATIENT

DRUGS (1)
  1. LENALIDOMIDE [Suspect]
     Active Substance: LENALIDOMIDE
     Indication: Follicular lymphoma
     Dosage: 10 MILLIGRAM, QD, DAILY (ON DAYS 1 TO 21 OF EACH 28 DAYS CYCLE)
     Route: 048
     Dates: start: 20251016

REACTIONS (2)
  - Glossodynia [Unknown]
  - Oral pain [Unknown]

NARRATIVE: CASE EVENT DATE: 20251101
